FAERS Safety Report 13028583 (Version 1)
Quarter: 2016Q4

REPORT INFORMATION
  Report Type: Spontaneous
  Country: US (occurrence: US)
  Receive Date: 20161214
  Receipt Date: 20161214
  Transmission Date: 20170207
  Serious: No
  Sender: FDA-Public Use
  Company Number: US-JEROME STEVENS PHARMACEUTICALS, INC.-1060811

PATIENT
  Age: 74 Year
  Sex: Female

DRUGS (5)
  1. MULTIVITAMIN [Concomitant]
     Active Substance: VITAMINS
  2. CALCIUM [Concomitant]
     Active Substance: CALCIUM
  3. PREMARIN [Concomitant]
     Active Substance: ESTROGENS, CONJUGATED
  4. VITAMIN B12 [Concomitant]
     Active Substance: CYANOCOBALAMIN
  5. LEVOTHYROXINE SODIUM. [Suspect]
     Active Substance: LEVOTHYROXINE SODIUM
     Dates: start: 201609

REACTIONS (1)
  - Lethargy [None]

NARRATIVE: CASE EVENT DATE: 201609
